FAERS Safety Report 24720582 (Version 1)
Quarter: 2024Q4

REPORT INFORMATION
  Report Type: Other
  Country: FR (occurrence: FR)
  Receive Date: 20241211
  Receipt Date: 20241211
  Transmission Date: 20250115
  Serious: Yes (Hospitalization)
  Sender: ZYDUS PHARM
  Company Number: None

PATIENT

DRUGS (2)
  1. ARIPIPRAZOLE [Suspect]
     Active Substance: ARIPIPRAZOLE
     Indication: Autism spectrum disorder
     Dosage: 15 MILLIGRAM, QD
     Route: 048
     Dates: start: 20241018, end: 20241024
  2. CLOZAPINE [Suspect]
     Active Substance: CLOZAPINE
     Indication: Autism spectrum disorder
     Dosage: 100 MILLIGRAM, QD
     Route: 048
     Dates: end: 20241017

REACTIONS (9)
  - Disorientation [Recovering/Resolving]
  - Asthenia [Recovered/Resolved]
  - Confusional state [Recovering/Resolving]
  - Insomnia [Recovered/Resolved]
  - Psychomotor skills impaired [Recovering/Resolving]
  - Tremor [Recovering/Resolving]
  - Agitation [Recovered/Resolved]
  - Vomiting [Recovered/Resolved]
  - Somnolence [Recovered/Resolved]

NARRATIVE: CASE EVENT DATE: 20241019
